FAERS Safety Report 7372413-X (Version None)
Quarter: 2011Q1

REPORT INFORMATION
  Report Type: 
  Country: None (occurrence: None)
  Receive Date: 20110324
  Receipt Date: 20100825
  Transmission Date: 20110831
  Serious: Yes (Other)
  Sender: FDA-Public Use
  Company Number: PHHY2010DE91058

PATIENT
  Sex: Male

DRUGS (1)
  1. EXTAVIA [Suspect]
     Dosage: UNK
     Dates: start: 20100823

REACTIONS (3)
  - CARDIAC DISORDER [None]
  - INSOMNIA [None]
  - MUSCULOSKELETAL DISORDER [None]
